FAERS Safety Report 13676448 (Version 2)
Quarter: 2017Q3

REPORT INFORMATION
  Report Type: Spontaneous
  Country: US (occurrence: US)
  Receive Date: 20170622
  Receipt Date: 20170811
  Transmission Date: 20171127
  Serious: Yes (Life-Threatening, Hospitalization, Other)
  Sender: FDA-Public Use
  Company Number: PHEH2017US018920

PATIENT
  Age: 53 Year
  Sex: Male
  Weight: 114.5 kg

DRUGS (1)
  1. ENTRESTO [Suspect]
     Active Substance: SACUBITRIL\VALSARTAN
     Indication: CARDIAC FAILURE CONGESTIVE
     Dosage: 100 MG, UNK
     Route: 048
     Dates: start: 20170323, end: 20170612

REACTIONS (9)
  - Dehydration [Unknown]
  - Cardiac tamponade [Unknown]
  - Metastases to heart [Unknown]
  - Oedema [Unknown]
  - Pericardial effusion [Unknown]
  - Acute kidney injury [Recovered/Resolved]
  - Orthopnoea [Unknown]
  - Nocturnal dyspnoea [Unknown]
  - Dyspnoea [Unknown]

NARRATIVE: CASE EVENT DATE: 20170612
